FAERS Safety Report 8364900-2 (Version None)
Quarter: 2012Q2

REPORT INFORMATION
  Report Type: 
  Country: None (occurrence: None)
  Receive Date: 20120516
  Receipt Date: 20120508
  Transmission Date: 20120825
  Serious: No
  Sender: FDA-Public Use
  Company Number: US-ASTRAZENECA-2011SE73493

PATIENT
  Age: 54 Year
  Sex: Female

DRUGS (1)
  1. NEXIUM [Suspect]
     Route: 048

REACTIONS (6)
  - ADVERSE EVENT [None]
  - DYSPHAGIA [None]
  - SLEEP DISORDER DUE TO GENERAL MEDICAL CONDITION, INSOMNIA TYPE [None]
  - GASTROOESOPHAGEAL REFLUX DISEASE [None]
  - INTENTIONAL DRUG MISUSE [None]
  - PHARYNGEAL OEDEMA [None]
